FAERS Safety Report 23415001 (Version 3)
Quarter: 2025Q1

REPORT INFORMATION
  Report Type: Report from Study
  Country: US (occurrence: US)
  Receive Date: 20240118
  Receipt Date: 20250319
  Transmission Date: 20250409
  Serious: Yes (Other)
  Sender: TAKEDA
  Company Number: US-TAKEDA-2024TUS003570

PATIENT
  Sex: Male
  Weight: 120 kg

DRUGS (3)
  1. VEDOLIZUMAB [Suspect]
     Active Substance: VEDOLIZUMAB
     Indication: Colitis ulcerative
  2. SULFASALAZINE [Concomitant]
     Active Substance: SULFASALAZINE
  3. FOLIC ACID [Concomitant]
     Active Substance: FOLIC ACID

REACTIONS (5)
  - Colitis ulcerative [Unknown]
  - Bipolar disorder [Unknown]
  - Memory impairment [Unknown]
  - Muscle spasms [Unknown]
  - Product dose omission issue [Unknown]
